FAERS Safety Report 4465355-0 (Version None)
Quarter: 2004Q4

REPORT INFORMATION
  Report Type: 
  Country: None (occurrence: None)
  Receive Date: 20041004
  Receipt Date: 20040923
  Transmission Date: 20050328
  Serious: Yes (Hospitalization)
  Sender: FDA-Public Use
  Company Number: DE-JNJFOC-20040908304

PATIENT
  Sex: Female
  Weight: 65 kg

DRUGS (15)
  1. DURAGESIC [Suspect]
     Indication: PAIN
     Route: 062
  2. LEVOFLOXACIN [Suspect]
     Route: 049
  3. BELOC-ZOK MITE [Suspect]
     Indication: HYPERTENSION
     Route: 049
  4. MOBLOC [Suspect]
     Route: 049
  5. MOBLOC [Suspect]
     Indication: HYPERTENSION
     Dosage: 1 TABLET/DAILY.
     Route: 049
  6. MONOLONG [Suspect]
     Route: 049
  7. INSULIN ACTRAPHANE [Suspect]
     Indication: DIABETES MELLITUS
     Route: 058
  8. CODIOVAN [Concomitant]
     Route: 049
  9. CODIOVAN [Concomitant]
     Indication: HYPERTENSION
     Dosage: 80/12.5MG
     Route: 049
  10. DEPRESSAN [Concomitant]
     Indication: HYPERTENSION
     Route: 049
  11. DIBLOCIN [Concomitant]
     Indication: HYPERTENSION
     Route: 049
  12. FURORESE [Concomitant]
     Route: 049
  13. HCT [Concomitant]
     Indication: HYPERTENSION
     Route: 049
  14. NEXIUM [Concomitant]
     Indication: PROPHYLAXIS
     Route: 049
  15. ALLO [Concomitant]
     Indication: HYPERURICAEMIA
     Route: 049

REACTIONS (12)
  - BLOOD CALCIUM DECREASED [None]
  - BLOOD GLUCOSE DECREASED [None]
  - BLOOD SODIUM DECREASED [None]
  - DISTURBANCE IN ATTENTION [None]
  - DIZZINESS [None]
  - DRUG INTERACTION [None]
  - HAEMATOCRIT DECREASED [None]
  - HAEMOGLOBIN DECREASED [None]
  - HEART RATE DECREASED [None]
  - HYPERTENSION [None]
  - RESPIRATORY RATE INCREASED [None]
  - WHITE BLOOD CELL COUNT INCREASED [None]
